FAERS Safety Report 11436826 (Version 1)
Quarter: 2015Q3

REPORT INFORMATION
  Report Type: Spontaneous
  Country: US (occurrence: US)
  Receive Date: 20150821
  Receipt Date: 20150821
  Transmission Date: 20151125
  Serious: No
  Sender: FDA-Public Use
  Company Number: US-ELI_LILLY_AND_COMPANY-US200602002227

PATIENT
  Age: 54 Year
  Sex: Female

DRUGS (9)
  1. PROTONIX [Concomitant]
     Active Substance: PANTOPRAZOLE SODIUM
     Indication: GASTROOESOPHAGEAL REFLUX DISEASE
  2. ATIVAN [Concomitant]
     Active Substance: LORAZEPAM
     Indication: INSOMNIA
  3. CYMBALTA [Suspect]
     Active Substance: DULOXETINE HYDROCHLORIDE
     Indication: DEPRESSION SUICIDAL
     Dosage: 60 MG, UNK
     Dates: start: 20060208, end: 2006
  4. GLYBURIDE. [Concomitant]
     Active Substance: GLYBURIDE
     Indication: DIABETES MELLITUS
  5. NATURES OWN REFLUX FREE OMEGA-3 FISH OIL [Concomitant]
     Indication: BLOOD TRIGLYCERIDES
  6. IBUPROFEN. [Concomitant]
     Active Substance: IBUPROFEN
     Indication: MYOFASCIAL PAIN SYNDROME
  7. MULTIVITAMINS [Concomitant]
     Active Substance: VITAMINS
  8. ESZOPICLONE. [Concomitant]
     Active Substance: ESZOPICLONE
     Indication: INSOMNIA
     Dates: start: 20060208
  9. GLUCOPHAGE [Concomitant]
     Active Substance: METFORMIN HYDROCHLORIDE
     Indication: DIABETES MELLITUS

REACTIONS (6)
  - Dizziness [Recovered/Resolved]
  - Sluggishness [Not Recovered/Not Resolved]
  - Blood glucose fluctuation [Recovering/Resolving]
  - Sleep disorder [Recovered/Resolved]
  - Asthenia [Recovered/Resolved]
  - Headache [Not Recovered/Not Resolved]

NARRATIVE: CASE EVENT DATE: 2006
